FAERS Safety Report 16722554 (Version 3)
Quarter: 2019Q3

REPORT INFORMATION
  Report Type: Spontaneous
  Country: US (occurrence: US)
  Receive Date: 20190820
  Receipt Date: 20190926
  Transmission Date: 20191005
  Serious: Yes (Other)
  Sender: FDA-Public Use
  Company Number: US-IGSA-SR10008950

PATIENT
  Age: 55 Year
  Sex: Female
  Weight: 106.2 kg

DRUGS (13)
  1. BIOTIN [Concomitant]
     Active Substance: BIOTIN
  2. PROGESTERONE. [Concomitant]
     Active Substance: PROGESTERONE
  3. ACETAMINOPHEN. [Concomitant]
     Active Substance: ACETAMINOPHEN
  4. GAMUNEX-C [Suspect]
     Active Substance: HUMAN IMMUNOGLOBULIN G
     Indication: POLYMYOSITIS
     Dosage: 40 G, UNK
     Route: 042
     Dates: start: 20190731
  5. PREDNISONE. [Concomitant]
     Active Substance: PREDNISONE
  6. IMITREX [Concomitant]
     Active Substance: SUMATRIPTAN SUCCINATE
  7. ATOVAQUONE. [Concomitant]
     Active Substance: ATOVAQUONE
  8. MYCOPHENOLATE MOFETIL. [Concomitant]
     Active Substance: MYCOPHENOLATE MOFETIL
  9. VITAMIN D                          /00107901/ [Concomitant]
     Active Substance: ERGOCALCIFEROL
  10. TOPIRAMATE. [Concomitant]
     Active Substance: TOPIRAMATE
  11. KLONOPIN [Concomitant]
     Active Substance: CLONAZEPAM
  12. ESTRADIOL. [Concomitant]
     Active Substance: ESTRADIOL
  13. GARLIC                             /01570501/ [Concomitant]
     Active Substance: GARLIC

REACTIONS (1)
  - Rash [Unknown]

NARRATIVE: CASE EVENT DATE: 20190731
